FAERS Safety Report 9323936 (Version 1)
Quarter: 2013Q2

REPORT INFORMATION
  Report Type: Spontaneous
  Country: AU (occurrence: AU)
  Receive Date: 20130603
  Receipt Date: 20130603
  Transmission Date: 20140414
  Serious: Yes (Other)
  Sender: FDA-Public Use
  Company Number: AU-BAYER-2013-066674

PATIENT
  Age: 19 Year
  Sex: Male

DRUGS (2)
  1. MOXIFLOXACIN ORAL [Suspect]
     Indication: MYCOBACTERIUM ULCERANS INFECTION
     Dosage: 400 MG DAILY
     Route: 048
  2. RIFAMPICIN [Suspect]
     Indication: MYCOBACTERIUM ULCERANS INFECTION
     Dosage: 600 MG DAILY

REACTIONS (2)
  - Paradoxical drug reaction [Recovered/Resolved]
  - Mycobacterium ulcerans infection [Recovered/Resolved]
